APPROVED DRUG PRODUCT: MOEXIPRIL HYDROCHLORIDE
Active Ingredient: MOEXIPRIL HYDROCHLORIDE
Strength: 7.5MG
Dosage Form/Route: TABLET;ORAL
Application: A076204 | Product #001 | TE Code: AB
Applicant: TEVA PHARMACEUTICALS USA INC
Approved: May 8, 2003 | RLD: No | RS: No | Type: RX